FAERS Safety Report 8218743-0 (Version None)
Quarter: 2012Q1

REPORT INFORMATION
  Report Type: 
  Country: None (occurrence: None)
  Receive Date: 20120319
  Receipt Date: 20120313
  Transmission Date: 20120608
  Serious: Yes (Other)
  Sender: FDA-Public Use
  Company Number: PHHY2012BR023118

PATIENT

DRUGS (4)
  1. ANTIINFLAMMATORY/ANTIRHEUMATIC NON-STEROIDS [Concomitant]
  2. GLEEVEC [Suspect]
     Indication: POLYCYTHAEMIA VERA
     Route: 048
  3. PSYCHIATRIC THERAPY [Concomitant]
  4. ASPIRIN [Concomitant]

REACTIONS (4)
  - VOMITING [None]
  - DIARRHOEA HAEMORRHAGIC [None]
  - GASTROINTESTINAL DISORDER [None]
  - NAUSEA [None]
